FAERS Safety Report 5073854-6 (Version None)
Quarter: 2006Q3

REPORT INFORMATION
  Report Type: 
  Country: None (occurrence: None)
  Receive Date: 20060803
  Receipt Date: 20060719
  Transmission Date: 20061208
  Serious: Yes (Hospitalization)
  Sender: FDA-Public Use
  Company Number: 111581ISR

PATIENT
  Age: 24 Month
  Sex: Male

DRUGS (17)
  1. ETOPOSIDE [Suspect]
     Indication: METASTATIC NEOPLASM
     Dosage: 130 MILLIGRAM INTRAVENOUS (NOS)
     Route: 042
     Dates: start: 20060517, end: 20060518
  2. ETOPOSIDE [Suspect]
     Indication: NEUROBLASTOMA
     Dosage: 130 MILLIGRAM INTRAVENOUS (NOS)
     Route: 042
     Dates: start: 20060517, end: 20060518
  3. CARBOPLATIN [Suspect]
     Indication: METASTATIC NEOPLASM
     Dosage: 560 MILLIGRAM INTRAVENOUS (NOS)
     Route: 042
     Dates: start: 20060517, end: 20060517
  4. CARBOPLATIN [Suspect]
     Indication: NEUROBLASTOMA
     Dosage: 560 MILLIGRAM INTRAVENOUS (NOS)
     Route: 042
     Dates: start: 20060517, end: 20060517
  5. VINCRISTINE SULFATE [Suspect]
     Indication: METASTATIC NEOPLASM
     Dosage: 1.1 MILLIGRAM INTRAVENOUS (NOS)
     Route: 042
     Dates: start: 20060517, end: 20060517
  6. VINCRISTINE SULFATE [Suspect]
     Indication: NEUROBLASTOMA
     Dosage: 1.1 MILLIGRAM INTRAVENOUS (NOS)
     Route: 042
     Dates: start: 20060517, end: 20060517
  7. METOPIMAZINE [Suspect]
     Dosage: INTRAVENOUS (NOS)
     Route: 042
     Dates: start: 20060517, end: 20060522
  8. METOPIMAZINE [Suspect]
     Dosage: INTRAVENOUS (NOS)
     Route: 042
     Dates: start: 20060527
  9. LENOGRASTIM [Suspect]
     Dates: start: 20060520, end: 20060522
  10. ACETAMINOPHEN [Suspect]
     Dosage: 1200 MILLIGRAM INTRAVENOUS (NOS)
     Route: 042
     Dates: start: 20060507, end: 20060522
  11. BACTRIM [Suspect]
     Dosage: ORAL
     Route: 048
     Dates: start: 20060517
  12. LUGOL CAP [Suspect]
     Dosage: ORAL
     Route: 048
     Dates: start: 20060509, end: 20060518
  13. CODEINE [Suspect]
     Dosage: ORAL
     Route: 048
     Dates: start: 20060507, end: 20060520
  14. NALBUPHINE HCL [Suspect]
     Dates: start: 20060522
  15. ONDANSETRON HCL [Concomitant]
  16. HYDROXYZINE HYDROCHLORIDE [Concomitant]
  17. IBUPROFEN [Concomitant]

REACTIONS (5)
  - ALANINE AMINOTRANSFERASE INCREASED [None]
  - ASPARTATE AMINOTRANSFERASE INCREASED [None]
  - RENAL FAILURE ACUTE [None]
  - RENAL TUBULAR NECROSIS [None]
  - TRANSAMINASES INCREASED [None]
